FAERS Safety Report 5558222-2 (Version None)
Quarter: 2007Q4

REPORT INFORMATION
  Report Type: 
  Country: None (occurrence: None)
  Receive Date: 20071214
  Receipt Date: 20071206
  Transmission Date: 20080405
  Serious: Yes (Other)
  Sender: FDA-Public Use
  Company Number: CA-ABBOTT-07P-028-0427639-00

PATIENT
  Sex: Male

DRUGS (1)
  1. TEVETEN [Suspect]
     Indication: HYPERTENSION
     Route: 065
     Dates: start: 20050101

REACTIONS (3)
  - ASTHENIA [None]
  - MYOSITIS [None]
  - PAIN [None]
